FAERS Safety Report 21554488 (Version 1)
Quarter: 2022Q4

REPORT INFORMATION
  Report Type: Spontaneous
  Country: IN (occurrence: IN)
  Receive Date: 20221104
  Receipt Date: 20221104
  Transmission Date: 20230113
  Serious: Yes (Other)
  Sender: FDA-Public Use
  Company Number: IN-SUN PHARMACEUTICAL INDUSTRIES LTD-2022R1-362174

PATIENT
  Age: 39 Year
  Sex: Male

DRUGS (20)
  1. CYCLOPENTOLATE [Suspect]
     Active Substance: CYCLOPENTOLATE
     Indication: Eye pain
     Dosage: UNK
     Route: 065
  2. CYCLOPENTOLATE [Suspect]
     Active Substance: CYCLOPENTOLATE
     Indication: Ocular hyperaemia
  3. CYCLOPENTOLATE [Suspect]
     Active Substance: CYCLOPENTOLATE
     Indication: Photophobia
  4. CYCLOPENTOLATE [Suspect]
     Active Substance: CYCLOPENTOLATE
     Indication: Lacrimation increased
  5. CYCLOPENTOLATE [Suspect]
     Active Substance: CYCLOPENTOLATE
     Indication: Swelling of eyelid
  6. NATAMYCIN [Suspect]
     Active Substance: NATAMYCIN
     Indication: Eye pain
     Dosage: UNK
     Route: 065
  7. NATAMYCIN [Suspect]
     Active Substance: NATAMYCIN
     Indication: Ocular hyperaemia
  8. NATAMYCIN [Suspect]
     Active Substance: NATAMYCIN
     Indication: Photophobia
  9. NATAMYCIN [Suspect]
     Active Substance: NATAMYCIN
     Indication: Lacrimation increased
  10. NATAMYCIN [Suspect]
     Active Substance: NATAMYCIN
     Indication: Swelling of eyelid
  11. TOBRAMYCIN [Suspect]
     Active Substance: TOBRAMYCIN
     Indication: Eye pain
     Dosage: UNK
     Route: 065
  12. TOBRAMYCIN [Suspect]
     Active Substance: TOBRAMYCIN
     Indication: Ocular hyperaemia
  13. TOBRAMYCIN [Suspect]
     Active Substance: TOBRAMYCIN
     Indication: Photophobia
  14. TOBRAMYCIN [Suspect]
     Active Substance: TOBRAMYCIN
     Indication: Lacrimation increased
  15. TOBRAMYCIN [Suspect]
     Active Substance: TOBRAMYCIN
     Indication: Swelling of eyelid
  16. LOMEFLOXACIN [Suspect]
     Active Substance: LOMEFLOXACIN
     Indication: Eye pain
     Dosage: UNK
     Route: 065
  17. LOMEFLOXACIN [Suspect]
     Active Substance: LOMEFLOXACIN
     Indication: Ocular hyperaemia
  18. LOMEFLOXACIN [Suspect]
     Active Substance: LOMEFLOXACIN
     Indication: Photophobia
  19. LOMEFLOXACIN [Suspect]
     Active Substance: LOMEFLOXACIN
     Indication: Lacrimation increased
  20. LOMEFLOXACIN [Suspect]
     Active Substance: LOMEFLOXACIN
     Indication: Swelling of eyelid

REACTIONS (1)
  - Condition aggravated [Unknown]
